FAERS Safety Report 9490611 (Version 1)
Quarter: 2013Q3

REPORT INFORMATION
  Report Type: Spontaneous
  Country: ES (occurrence: None)
  Receive Date: 20130826
  Receipt Date: 20130826
  Transmission Date: 20140515
  Serious: Yes (Hospitalization, Other)
  Sender: FDA-Public Use
  Company Number: ES-ZYDUS-002056

PATIENT
  Age: 39 Year
  Sex: 0

DRUGS (6)
  1. TRAMADOL (TRAMADOL) [Suspect]
     Indication: PAIN
  2. MORPHINE (MORPHINE) (UNKNOWN) (MORPHINE) [Suspect]
     Indication: PAIN
  3. ALPRAZOLAM (ALPRAZOLAM) [Suspect]
     Indication: ANALGESIC THERAPY
  4. PARACETAMOL (PARACETAMOL) [Suspect]
     Indication: ANALGESIC THERAPY
  5. HYDROMORPHONE (HYDROMORPHONE) [Concomitant]
  6. FENTANYL (FENTANYL) [Concomitant]

REACTIONS (2)
  - Haematoma [None]
  - Drug dependence [None]
